FAERS Safety Report 19459862 (Version 1)
Quarter: 2021Q2

REPORT INFORMATION
  Report Type: Report from Study
  Country: None (occurrence: US)
  Receive Date: 20210625
  Receipt Date: 20210625
  Transmission Date: 20210717
  Serious: Yes (Hospitalization, Other)
  Sender: FDA-Public Use
  Company Number: US-ABBVIE-21K-163-3929979-00

PATIENT
  Sex: Female
  Weight: 118.04 kg

DRUGS (2)
  1. LEVOTHYROXINE. [Concomitant]
     Active Substance: LEVOTHYROXINE
     Indication: HYPOTHYROIDISM
     Route: 065
  2. HUMIRA [Suspect]
     Active Substance: ADALIMUMAB
     Indication: CROHN^S DISEASE
     Route: 058
     Dates: start: 2018

REACTIONS (7)
  - Gastrointestinal inflammation [Recovering/Resolving]
  - Intestinal obstruction [Recovering/Resolving]
  - Abdominal pain [Recovering/Resolving]
  - Gastrointestinal infection [Recovering/Resolving]
  - Device issue [Recovered/Resolved]
  - Hernia [Recovered/Resolved]
  - Scar [Recovering/Resolving]

NARRATIVE: CASE EVENT DATE: 2020
